FAERS Safety Report 23994078 (Version 2)
Quarter: 2024Q3

REPORT INFORMATION
  Report Type: Spontaneous
  Country: JP (occurrence: JP)
  Receive Date: 20240620
  Receipt Date: 20240701
  Transmission Date: 20241016
  Serious: Yes (Death, Other)
  Sender: VERICEL
  Company Number: JP-VERICEL-JP-VCEL-24-000222

PATIENT
  Age: 73 Year
  Sex: Male

DRUGS (1)
  1. BROMELAINS [Suspect]
     Active Substance: BROMELAINS
     Indication: Thermal burn
     Dosage: 30 GRAM, SINGLE
     Route: 061

REACTIONS (1)
  - Circulatory collapse [Fatal]
